FAERS Safety Report 7094256-7 (Version None)
Quarter: 2010Q4

REPORT INFORMATION
  Report Type: 
  Country: None (occurrence: None)
  Receive Date: 20101110
  Receipt Date: 20101103
  Transmission Date: 20110411
  Serious: Yes (Hospitalization)
  Sender: FDA-Public Use
  Company Number: US-PFIZER INC-2010140051

PATIENT
  Sex: Male
  Weight: 77.1 kg

DRUGS (2)
  1. DILANTIN [Suspect]
     Indication: CONVULSION
     Dosage: 100 MG, 4X/DAY
     Route: 048
     Dates: start: 19520101
  2. PRIMIDONE [Suspect]
     Indication: CONVULSION
     Dosage: 250 MG, 4X/DAY
     Route: 048
     Dates: start: 19520101

REACTIONS (3)
  - COMA [None]
  - GRAND MAL CONVULSION [None]
  - LOSS OF CONSCIOUSNESS [None]
